FAERS Safety Report 16486474 (Version 2)
Quarter: 2019Q3

REPORT INFORMATION
  Report Type: Spontaneous
  Country: US (occurrence: US)
  Receive Date: 20190627
  Receipt Date: 20190724
  Transmission Date: 20191004
  Serious: No
  Sender: FDA-Public Use
  Company Number: US-GALDERMA-US19021443

PATIENT
  Age: 23 Year
  Sex: Female

DRUGS (6)
  1. PROACTIV MD ADAPALENE ACNE TREATMENT [Suspect]
     Active Substance: ADAPALENE
     Indication: PRODUCT USED FOR UNKNOWN INDICATION
     Dosage: 0.1%
     Route: 050
     Dates: start: 20190309, end: 20190315
  2. PROACTIV GREEN TEA MOISTURIZER [Concomitant]
     Active Substance: COSMETICS
     Route: 050
     Dates: start: 20190309, end: 20190315
  3. PROACTIV MD DEEP CLEANSING FACE WASH [Concomitant]
     Active Substance: COSMETICS
     Route: 050
     Dates: start: 20190309, end: 20190315
  4. PROACTIV MD BALANCING TONER [Concomitant]
     Active Substance: COSMETICS
     Route: 050
     Dates: start: 20190309, end: 20190315
  5. PROACTIV MD DAILY OIL CONTROL SPF 30 [Suspect]
     Active Substance: AVOBENZONE\OCTISALATE\OCTOCRYLENE
     Indication: PRODUCT USED FOR UNKNOWN INDICATION
     Route: 050
     Dates: start: 20190309, end: 20190315
  6. PROACTIV EYE BRIGHTENING SERUM [Concomitant]
     Active Substance: COSMETICS
     Route: 050
     Dates: start: 20190309, end: 20190315

REACTIONS (3)
  - Skin burning sensation [Recovered/Resolved]
  - Skin irritation [Recovered/Resolved]
  - Dry skin [Recovered/Resolved]
